FAERS Safety Report 8022404-0 (Version None)
Quarter: 2012Q1

REPORT INFORMATION
  Report Type: 
  Country: None (occurrence: None)
  Receive Date: 20120104
  Receipt Date: 20110413
  Transmission Date: 20120608
  Serious: No
  Sender: FDA-Public Use
  Company Number: US-MYLANLABS-2011S1007938

PATIENT
  Age: 76 Year
  Sex: Female

DRUGS (1)
  1. ZONISAMIDE [Suspect]
     Route: 048
     Dates: start: 20110225

REACTIONS (2)
  - NAUSEA [None]
  - FEELING ABNORMAL [None]
